FAERS Safety Report 17219107 (Version 1)
Quarter: 2019Q4

REPORT INFORMATION
  Report Type: Report from Study
  Country: CA (occurrence: CA)
  Receive Date: 20191231
  Receipt Date: 20191231
  Transmission Date: 20200122
  Serious: Yes (Other)
  Sender: FDA-Public Use
  Company Number: CA-UCBSA-2019040970

PATIENT
  Sex: Female

DRUGS (2)
  1. CERTOLIZUMAB PEGOL AUTOCLICKS [Suspect]
     Active Substance: CERTOLIZUMAB PEGOL
     Indication: RHEUMATOID ARTHRITIS
     Dosage: 400 MICROGRAM, EV 2 WEEKS(QOW)
     Route: 058
     Dates: start: 20140916
  2. CERTOLIZUMAB PEGOL AUTOCLICKS [Suspect]
     Active Substance: CERTOLIZUMAB PEGOL
     Dosage: 200 MICROGRAM, EV 2 WEEKS(QOW)
     Route: 058

REACTIONS (3)
  - Injection site bruising [Unknown]
  - Pneumonia [Not Recovered/Not Resolved]
  - Mass [Unknown]
